FAERS Safety Report 6892073-1 (Version None)
Quarter: 2010Q3

REPORT INFORMATION
  Report Type: 
  Country: None (occurrence: None)
  Receive Date: 20100731
  Receipt Date: 20080131
  Transmission Date: 20110219
  Serious: Yes (Disabling)
  Sender: FDA-Public Use
  Company Number: US-PFIZER INC-2008007155

PATIENT
  Sex: Female
  Weight: 61.363 kg

DRUGS (12)
  1. ANTIVERT [Suspect]
     Indication: VERTIGO
     Dates: start: 20080105
  2. MYFORTIC [Concomitant]
  3. TACROLIMUS [Concomitant]
  4. NEXIUM [Concomitant]
  5. VYTORIN [Concomitant]
     Dosage: 10/80 MG
  6. ATACAND [Concomitant]
  7. ACETYLSALICYLIC ACID SRT [Concomitant]
  8. DOMPERIDONE [Concomitant]
  9. AMITIZA [Concomitant]
  10. ACTIVELLA [Concomitant]
     Dosage: 1/0.5 MG
  11. LIPRAM [Concomitant]
  12. ACTOS [Concomitant]

REACTIONS (2)
  - DRUG INEFFECTIVE [None]
  - FATIGUE [None]
